FAERS Safety Report 6880918-0 (Version None)
Quarter: 2010Q3

REPORT INFORMATION
  Report Type: 
  Country: None (occurrence: None)
  Receive Date: 20100728
  Receipt Date: 20100721
  Transmission Date: 20110219
  Serious: Yes (Other)
  Sender: FDA-Public Use
  Company Number: US-BRISTOL-MYERS SQUIBB COMPANY-15204100

PATIENT
  Sex: Female

DRUGS (3)
  1. COUMADIN [Suspect]
     Route: 048
  2. HYALGAN [Suspect]
     Dosage: 5 DOSE CYCLE: FIRST DOSE ON 6MAY10 AND FIFTH DOSE ON 14JUN10
     Route: 014
  3. SODIUM HYALURONATE [Suspect]

REACTIONS (3)
  - CONTUSION [None]
  - DEEP VEIN THROMBOSIS [None]
  - PROTHROMBIN TIME SHORTENED [None]
